FAERS Safety Report 7479405 (Version 5)
Quarter: 2013Q4

REPORT INFORMATION
  Report Type: Report from Study
  Country: DK (occurrence: DK)
  Receive Date: 20100716
  Receipt Date: 20131028
  Transmission Date: 20140711
  Serious: Yes (Hospitalization)
  Sender: FDA-Public Use
  Company Number: DK-JNJFOC-20100701775

PATIENT
  Age: 46 Year
  Sex: Female
  Weight: 85 kg

DRUGS (2)
  1. REMICADE [Suspect]
     Indication: COLITIS ULCERATIVE
     Dosage: 5 MG/KG WEEK 0, 2, 6
     Route: 042
     Dates: start: 20100126, end: 20100413
  2. PREDNISOLONE [Concomitant]

REACTIONS (2)
  - Breast pain [Recovered/Resolved]
  - Pericarditis [Recovered/Resolved]
